FAERS Safety Report 23202818 (Version 1)
Quarter: 2023Q4

REPORT INFORMATION
  Report Type: Spontaneous
  Country: US (occurrence: US)
  Receive Date: 20231120
  Receipt Date: 20231120
  Transmission Date: 20240110
  Serious: No
  Sender: FDA-Public Use
  Company Number: US-SA-SAC20231113000936

PATIENT
  Age: 43 Year
  Sex: Female

DRUGS (1)
  1. DUPIXENT [Suspect]
     Active Substance: DUPILUMAB
     Indication: Dermatitis atopic
     Dosage: UNK UNK, QOW
     Route: 058

REACTIONS (7)
  - Rash macular [Unknown]
  - Skin haemorrhage [Unknown]
  - Dry skin [Unknown]
  - Skin swelling [Unknown]
  - Skin fissures [Unknown]
  - Urticaria [Unknown]
  - Pruritus [Unknown]
